FAERS Safety Report 13919562 (Version 1)
Quarter: 2017Q3

REPORT INFORMATION
  Report Type: Spontaneous
  Country: US (occurrence: US)
  Receive Date: 20170830
  Receipt Date: 20170830
  Transmission Date: 20171127
  Serious: Yes (Hospitalization, Other)
  Sender: FDA-Public Use
  Company Number: US-AXELLIA-001165

PATIENT
  Age: 63 Year
  Sex: Female

DRUGS (5)
  1. OXYCODONE/OXYCODONE HYDROCHLORIDE/OXYCODONE PECTINATE/OXYCODONE TEREPHTHALATE [Interacting]
     Active Substance: OXYCODONE
     Indication: MUSCULOSKELETAL PAIN
     Dosage: EXTENDED RELEASE
  2. PIPERACILLIN/TAZOBACTAM [Concomitant]
     Indication: PNEUMONIA FUNGAL
  3. OXYGEN. [Concomitant]
     Active Substance: OXYGEN
     Indication: HYPOXIA
  4. VANCOMYCIN [Concomitant]
     Active Substance: VANCOMYCIN
     Indication: PNEUMONIA FUNGAL
     Route: 042
  5. VORICONAZOLE. [Suspect]
     Active Substance: VORICONAZOLE
     Indication: PNEUMONIA FUNGAL

REACTIONS (6)
  - Myoclonus [Recovered/Resolved]
  - Delirium [Recovering/Resolving]
  - Sedation [Recovering/Resolving]
  - Neurotoxicity [Recovering/Resolving]
  - Drug interaction [Unknown]
  - Sepsis [None]
